FAERS Safety Report 5882960-5 (Version None)
Quarter: 2008Q3

REPORT INFORMATION
  Report Type: 
  Country: None (occurrence: None)
  Receive Date: 20080913
  Receipt Date: 20080821
  Transmission Date: 20090109
  Serious: No
  Sender: FDA-Public Use
  Company Number: US-ABBOTT-08P-163-0472184-00

PATIENT
  Sex: Female
  Weight: 70.37 kg

DRUGS (4)
  1. HUMIRA [Suspect]
     Indication: PSORIATIC ARTHROPATHY
     Route: 050
     Dates: start: 20070801
  2. ACETAMINOPHEN [Concomitant]
     Indication: PSORIATIC ARTHROPATHY
     Route: 048
     Dates: start: 20060101
  3. DULOXETINE HYDROCHLORIDE [Concomitant]
     Indication: FIBROMYALGIA
     Route: 048
     Dates: start: 20070701
  4. MODAFINIL [Concomitant]
     Indication: ASTHENIA
     Route: 048
     Dates: start: 20070701

REACTIONS (1)
  - DRUG INEFFECTIVE [None]
